FAERS Safety Report 6691861-4 (Version None)
Quarter: 2010Q2

REPORT INFORMATION
  Report Type: 
  Country: None (occurrence: None)
  Receive Date: 20100422
  Receipt Date: 20100413
  Transmission Date: 20101027
  Serious: No
  Sender: FDA-Public Use
  Company Number: PHHY2009JP44459

PATIENT
  Sex: Male

DRUGS (3)
  1. ZOMETA [Suspect]
     Indication: METASTASES TO BONE
     Dosage: 4 MG, UNK
     Route: 042
     Dates: start: 20080124
  2. TS 1 [Concomitant]
     Dosage: UNK
     Route: 048
  3. SEISHOKU [Concomitant]
     Dosage: UNK
     Route: 041
     Dates: start: 20080124

REACTIONS (6)
  - ALTERED STATE OF CONSCIOUSNESS [None]
  - APHASIA [None]
  - DISORIENTATION [None]
  - DIZZINESS [None]
  - GAIT DISTURBANCE [None]
  - MUSCULAR WEAKNESS [None]
